FAERS Safety Report 7809603-5 (Version None)
Quarter: 2011Q4

REPORT INFORMATION
  Report Type: 
  Country: None (occurrence: None)
  Receive Date: 20111012
  Receipt Date: 20111003
  Transmission Date: 20120403
  Serious: Yes (Hospitalization)
  Sender: FDA-Public Use
  Company Number: JP-AMGEN-JPNCT2011050796

PATIENT
  Age: 67 Year
  Sex: Male
  Weight: 68 kg

DRUGS (11)
  1. BLINDED PLACEBO [Suspect]
     Indication: RHEUMATOID ARTHRITIS
     Route: 058
     Dates: start: 20110216
  2. ISOSORBIDE DINITRATE [Concomitant]
     Dosage: 5 MG, PRN
     Dates: start: 20110913
  3. BLINDED DENOSUMAB [Suspect]
     Indication: RHEUMATOID ARTHRITIS
     Route: 058
     Dates: start: 20110216
  4. RHEUMATREX [Concomitant]
     Indication: RHEUMATOID ARTHRITIS
     Dosage: 8 MG, QWK
     Route: 048
     Dates: start: 20100525
  5. DIOVAN [Concomitant]
     Indication: HYPERTENSION
     Dosage: UNK
     Route: 048
  6. KETOPROFEN [Concomitant]
     Indication: RHEUMATOID ARTHRITIS
     Dosage: AS NEEDED
     Route: 062
     Dates: start: 20100706
  7. ASPIRIN [Concomitant]
     Dosage: 100 MG, QD
     Dates: start: 20110913
  8. RABEPRAZOLE SODIUM [Concomitant]
     Dosage: 10 MG, UNK
     Dates: start: 20110913
  9. TENORMIN [Concomitant]
     Dosage: 25 MG, QD
     Dates: start: 20110913
  10. ISOSORBIDE MONONITRATE [Concomitant]
     Dosage: 40 MG, UNK
     Dates: start: 20110913
  11. FOLIC ACID [Concomitant]
     Indication: PROPHYLAXIS
     Dosage: 5 MG, QWK
     Route: 048
     Dates: start: 20100525

REACTIONS (1)
  - MYOCARDIAL INFARCTION [None]
